FAERS Safety Report 6739962-6 (Version None)
Quarter: 2010Q2

REPORT INFORMATION
  Report Type: 
  Country: None (occurrence: None)
  Receive Date: 20100521
  Receipt Date: 20100512
  Transmission Date: 20101027
  Serious: Yes (Hospitalization)
  Sender: FDA-Public Use
  Company Number: 2010EU001933

PATIENT
  Age: 62 Year
  Sex: Female

DRUGS (1)
  1. VESICARE [Suspect]

REACTIONS (2)
  - COUGH [None]
  - PULMONARY FIBROSIS [None]
